FAERS Safety Report 7791927-1 (Version None)
Quarter: 2011Q4

REPORT INFORMATION
  Report Type: 
  Country: None (occurrence: None)
  Receive Date: 20111003
  Receipt Date: 20110928
  Transmission Date: 20120403
  Serious: Yes (Hospitalization, Disabling, Other)
  Sender: FDA-Public Use
  Company Number: JP-PFIZER INC-2011231445

PATIENT

DRUGS (9)
  1. ALLOID [Concomitant]
     Indication: GASTRITIS PROPHYLAXIS
     Dosage: UNK
     Route: 048
     Dates: start: 20110905
  2. POTASSIUM CHLORIDE [Concomitant]
     Indication: MINERAL SUPPLEMENTATION
     Dosage: UNK
     Route: 041
     Dates: start: 20110905
  3. SOLUTIONS FOR PARENTERAL NUTRITION [Concomitant]
     Indication: MEDICAL DIET
     Dosage: 11000 ML/DAY
     Route: 041
  4. NEOPHAGEN [Concomitant]
     Indication: DRUG THERAPY
     Dosage: UNK
     Route: 041
     Dates: start: 20110905
  5. OMEPRAZOLE [Concomitant]
     Dosage: UNK
     Route: 041
     Dates: start: 20110905
  6. MUCOSTA [Concomitant]
     Indication: GASTRITIS PROPHYLAXIS
     Dosage: UNK
     Route: 048
     Dates: start: 20110905
  7. MARZULENE S [Concomitant]
     Indication: GASTRITIS PROPHYLAXIS
     Dosage: UNK
     Route: 048
     Dates: start: 20110905
  8. ZYVOX [Suspect]
     Indication: PNEUMONIA STAPHYLOCOCCAL
     Dosage: UNK
     Route: 041
     Dates: start: 20110905, end: 20110912
  9. POLYCARBOPHIL CALCIUM [Concomitant]
     Indication: CONSTIPATION
     Dosage: UNK
     Route: 048
     Dates: start: 20110905

REACTIONS (1)
  - RENAL FAILURE [None]
